FAERS Safety Report 9248251 (Version 2)
Quarter: 2013Q2

REPORT INFORMATION
  Report Type: Report from Study
  Country: US (occurrence: US)
  Receive Date: 20130423
  Receipt Date: 20130510
  Transmission Date: 20140414
  Serious: Yes (Other)
  Sender: FDA-Public Use
  Company Number: PHEH2013US004449

PATIENT
  Sex: Female
  Weight: 44.44 kg

DRUGS (5)
  1. GLEEVEC [Suspect]
     Indication: CHRONIC MYELOID LEUKAEMIA
     Dosage: 100 MG, BID
     Route: 048
     Dates: start: 2001
  2. GLEEVEC [Interacting]
     Dosage: UNK UKN, BID
     Route: 048
     Dates: start: 20121102
  3. GLEEVEC [Interacting]
     Dosage: UNK UKN, UNK
     Route: 048
  4. NAVELBINE [Interacting]
     Dosage: UNK UKN, UNK
  5. NEXAVAR [Interacting]
     Dosage: UNK UKN, UNK

REACTIONS (5)
  - Pelvic neoplasm [Unknown]
  - Drug interaction [Unknown]
  - Anaemia [Not Recovered/Not Resolved]
  - Thrombocytopenia [Not Recovered/Not Resolved]
  - Full blood count decreased [Unknown]
